FAERS Safety Report 15456514 (Version 2)
Quarter: 2018Q4

REPORT INFORMATION
  Report Type: Spontaneous
  Country: BE (occurrence: BE)
  Receive Date: 20181002
  Receipt Date: 20181010
  Transmission Date: 20190204
  Serious: No
  Sender: FDA-Public Use
  Company Number: PHHY2018BE113698

PATIENT
  Age: 22 Year
  Sex: Male

DRUGS (3)
  1. RILATINE [Suspect]
     Active Substance: METHYLPHENIDATE HYDROCHLORIDE
     Dosage: 10 MG, BID
     Route: 048
  2. RILATINE [Suspect]
     Active Substance: METHYLPHENIDATE HYDROCHLORIDE
     Dosage: 10 MG, TID
     Route: 048
  3. RILATINE [Suspect]
     Active Substance: METHYLPHENIDATE HYDROCHLORIDE
     Indication: DISTURBANCE IN ATTENTION
     Dosage: 10 MG, QD
     Route: 048
     Dates: start: 201706

REACTIONS (2)
  - Gynaecomastia [Not Recovered/Not Resolved]
  - Blood prolactin decreased [Unknown]

NARRATIVE: CASE EVENT DATE: 201803
